FAERS Safety Report 17531732 (Version 1)
Quarter: 2020Q1

REPORT INFORMATION
  Report Type: Spontaneous
  Country: DE (occurrence: DE)
  Receive Date: 20200311
  Receipt Date: 20200311
  Transmission Date: 20200409
  Serious: Yes (Other)
  Sender: FDA-Public Use
  Company Number: DE-ASTRAZENECA-2020SE34724

PATIENT
  Age: 26 Year
  Sex: Female

DRUGS (3)
  1. FORMOTEROL [Concomitant]
     Active Substance: FORMOTEROL
     Dosage: 12.0UG UNKNOWN
     Route: 065
  2. SALBUTAMOL [Concomitant]
     Active Substance: ALBUTEROL
     Dosage: 1 TO 2 INHALATIONS IF NECESSARY
     Route: 065
  3. BUDESONID [Suspect]
     Active Substance: BUDESONIDE
     Route: 055

REACTIONS (4)
  - Pulmonary embolism [Unknown]
  - Nasopharyngitis [Unknown]
  - Asthma [Unknown]
  - Eosinophil count increased [Unknown]
